FAERS Safety Report 13988260 (Version 3)
Quarter: 2018Q3

REPORT INFORMATION
  Report Type: Spontaneous
  Country: DE (occurrence: DE)
  Receive Date: 20170919
  Receipt Date: 20180816
  Transmission Date: 20181010
  Serious: Yes (Hospitalization)
  Sender: FDA-Public Use
  Company Number: DE-TEVA-805791GER

PATIENT
  Age: 51 Year
  Sex: Male

DRUGS (2)
  1. METHOTREXATE. [Suspect]
     Active Substance: METHOTREXATE
     Indication: IMMUNE THROMBOCYTOPENIC PURPURA
     Route: 048
  2. FOLIC ACID. [Concomitant]
     Active Substance: FOLIC ACID
     Dosage: ON THE DAY AFTER METHOTREXATE ADMINISTRATION

REACTIONS (3)
  - Product use in unapproved indication [Unknown]
  - Colitis ischaemic [Not Recovered/Not Resolved]
  - Prescribed overdose [Not Recovered/Not Resolved]
